FAERS Safety Report 25874589 (Version 2)
Quarter: 2025Q4

REPORT INFORMATION
  Report Type: Spontaneous
  Country: EU (occurrence: EU)
  Receive Date: 20251002
  Receipt Date: 20251110
  Transmission Date: 20260118
  Serious: No
  Sender: BAUSCH AND LOMB
  Company Number: EU-BAUSCH-BH-2025-018024

PATIENT
  Age: 54 Year
  Sex: Female
  Weight: 44 kg

DRUGS (17)
  1. PYRIDOSTIGMINE [Suspect]
     Active Substance: PYRIDOSTIGMINE
     Indication: Myasthenia gravis
     Route: 048
     Dates: start: 20211012
  2. LORAZEPAM [Concomitant]
     Active Substance: LORAZEPAM
     Indication: Anxiety disorder
     Dosage: 1 MG 2 TABLETS
     Route: 048
     Dates: start: 2021, end: 20211012
  3. PRAZEPAM [Concomitant]
     Active Substance: PRAZEPAM
     Indication: Anxiety disorder
     Dates: start: 2021
  4. BROMAZEPAM [Concomitant]
     Active Substance: BROMAZEPAM
     Indication: Anxiety disorder
     Dates: start: 2021
  5. AMITRIPTYLINE [Concomitant]
     Active Substance: AMITRIPTYLINE
     Indication: Anxiety disorder
     Dates: start: 2021
  6. CITALOPRAM [Concomitant]
     Active Substance: CITALOPRAM
     Indication: Anxiety disorder
     Dosage: BEFORE MYASTHENIA GRAVIS DIAGNOSIS
     Dates: start: 2021
  7. CITALOPRAM [Concomitant]
     Active Substance: CITALOPRAM
     Dosage: AFYER MYASTHENIA GRAVIS DIAGNOSIS
     Dates: start: 2021
  8. TIZANIDINE [Concomitant]
     Active Substance: TIZANIDINE
     Indication: Anxiety disorder
     Dates: start: 2021
  9. LEVOTHYROXINE [Concomitant]
     Active Substance: LEVOTHYROXINE
     Indication: Product used for unknown indication
     Dosage: 1 CP FROM MONDAY TO FRIDAY
  10. LEVOTHYROXINE [Concomitant]
     Active Substance: LEVOTHYROXINE
     Dosage: 2 CP OD SATURDAY AND SUNDAY
  11. ASPIRIN [Concomitant]
     Active Substance: ASPIRIN
     Indication: Product used for unknown indication
     Dosage: 1 CP BEFORE MYASTHENIA GRAVIS DIAGNOSIS
  12. ASPIRIN [Concomitant]
     Active Substance: ASPIRIN
     Dosage: 1 TABLET, AFTER MYASTHENIA GRAVIS DIAGNOSIS
  13. PREDNISONE [Concomitant]
     Active Substance: PREDNISONE
     Indication: Product used for unknown indication
     Dosage: AFTER MYASTHENIA GRAVIS DIAGNOSIS, 2 TABLETS
  14. RABEPRAZOLE [Concomitant]
     Active Substance: RABEPRAZOLE
     Indication: Product used for unknown indication
     Dosage: 1 TABLET, AFTER MYASTHENIA GRAVIS DIAGNOSIS
  15. CALCITRIOL [Concomitant]
     Active Substance: CALCITRIOL
     Indication: Product used for unknown indication
     Dosage: 1 TABLET, AFTER MYASTHENIA GRAVIS DIAGNOSIS
  16. QUETIAPINE [Concomitant]
     Active Substance: QUETIAPINE
     Indication: Product used for unknown indication
     Dosage: 1 TABLET, AFTER MYASTHENIA GRAVIS DIAGNOSIS
  17. MESTINON RP [Concomitant]
     Dosage: 1 TABLET, AFTER MYASTHENIA GRAVIS DIAGNOSIS

REACTIONS (1)
  - Therapy partial responder [Unknown]

NARRATIVE: CASE EVENT DATE: 20210101
